FAERS Safety Report 11976140 (Version 1)
Quarter: 2016Q1

REPORT INFORMATION
  Report Type: Spontaneous
  Country: US (occurrence: None)
  Receive Date: 20160128
  Receipt Date: 20160128
  Transmission Date: 20160526
  Serious: No
  Sender: FDA-Public Use
  Company Number: None

PATIENT
  Age: 25 Year
  Sex: Female

DRUGS (1)
  1. NEXPLANON [Suspect]
     Active Substance: ETONOGESTREL
     Dates: start: 20150201, end: 20160120

REACTIONS (8)
  - Weight increased [None]
  - Decreased appetite [None]
  - Anxiety [None]
  - Scar [None]
  - Implant site pain [None]
  - Device dislocation [None]
  - Mood swings [None]
  - Device breakage [None]

NARRATIVE: CASE EVENT DATE: 20160120
